FAERS Safety Report 10606698 (Version 1)
Quarter: 2014Q4

REPORT INFORMATION
  Report Type: Spontaneous
  Country: US (occurrence: None)
  Receive Date: 20141124
  Receipt Date: 20141124
  Transmission Date: 20150529
  Serious: Yes (Disabling)
  Sender: FDA-Public Use
  Company Number: None

PATIENT
  Age: 47 Year
  Sex: Female
  Weight: 54.43 kg

DRUGS (1)
  1. LEVAQUIN [Suspect]
     Active Substance: LEVOFLOXACIN
     Indication: CAT SCRATCH DISEASE
     Dosage: 1 PILL, TAKEN BY MOUTH
     Route: 048
     Dates: start: 20110614, end: 20110707

REACTIONS (2)
  - Muscle spasms [None]
  - Unevaluable event [None]

NARRATIVE: CASE EVENT DATE: 20110614
